APPROVED DRUG PRODUCT: ATARAX
Active Ingredient: HYDROXYZINE HYDROCHLORIDE
Strength: 10MG/5ML **Federal Register determination that product was not discontinued or withdrawn for safety or effectiveness reasons**
Dosage Form/Route: SYRUP;ORAL
Application: N010485 | Product #001
Applicant: ROERIG DIV PFIZER INC
Approved: Approved Prior to Jan 1, 1982 | RLD: No | RS: No | Type: DISCN